FAERS Safety Report 7194196-9 (Version None)
Quarter: 2010Q4

REPORT INFORMATION
  Report Type: 
  Country: None (occurrence: None)
  Receive Date: 20101223
  Receipt Date: 20101214
  Transmission Date: 20110411
  Serious: Yes (Death, Hospitalization)
  Sender: FDA-Public Use
  Company Number: JP-AMGEN-JPNCT2010000648

PATIENT

DRUGS (19)
  1. PANITUMUMAB [Suspect]
     Indication: COLORECTAL CANCER
     Dosage: 6 MG/KG, Q2WK
     Route: 041
     Dates: start: 20100825, end: 20100922
  2. OXALIPLATIN [Suspect]
     Indication: COLORECTAL CANCER
     Route: 041
     Dates: start: 20071101, end: 20100501
  3. SOLDEM 3A [Concomitant]
     Dosage: UNK UNK, ONE TIME DOSE
     Route: 042
  4. VITACIMIN INJECTION [Concomitant]
     Dosage: UNK UNK, ONE TIME DOSE
     Route: 042
  5. ALTAT [Concomitant]
     Dosage: UNK UNK, ONE TIME DOSE
     Route: 042
  6. VITAMEDIN [Concomitant]
     Dosage: UNK
     Route: 042
  7. HUMULIN R [Concomitant]
     Dosage: UNK
     Route: 042
  8. MODACIN [Concomitant]
     Dosage: UNK
     Route: 042
  9. MEYLON [Concomitant]
     Dosage: UNK
     Route: 042
  10. SOLU-CORTEF [Concomitant]
     Dosage: UNK
     Route: 042
  11. OXINORM [Concomitant]
     Dosage: UNK
     Route: 048
  12. FERROUS CITRATE [Concomitant]
     Dosage: UNK
     Route: 048
  13. OMEPRAL [Concomitant]
     Dosage: UNK
     Route: 048
  14. GASMOTIN [Concomitant]
     Dosage: UNK
     Route: 048
  15. LOXONIN [Concomitant]
     Dosage: UNK
     Route: 048
  16. MAGMITT [Concomitant]
     Dosage: UNK
     Route: 048
  17. BETAMETHASONE [Concomitant]
     Indication: NEOPLASM MALIGNANT
     Dosage: UNK
     Route: 048
  18. BETAMETHASONE [Concomitant]
     Indication: MALAISE
  19. ALDACTONE [Concomitant]
     Indication: HYPERTENSION
     Dosage: UNK
     Route: 048

REACTIONS (5)
  - COLORECTAL CANCER [None]
  - DRY SKIN [None]
  - DYSGEUSIA [None]
  - ILEUS [None]
  - NEUROPATHY PERIPHERAL [None]
